FAERS Safety Report 10792734 (Version 3)
Quarter: 2015Q1

REPORT INFORMATION
  Report Type: Spontaneous
  Country: US (occurrence: US)
  Receive Date: 20150213
  Receipt Date: 20150302
  Transmission Date: 20150721
  Serious: Yes (Hospitalization, Other)
  Sender: FDA-Public Use
  Company Number: US-BAXTER-2015BAX007214

PATIENT
  Age: 45 Year
  Sex: Male

DRUGS (1)
  1. DIANEAL LOW CALCIUM PERITONEAL DIALYSIS SOLUTION WITH DEXTROSE [Suspect]
     Active Substance: CALCIUM CHLORIDE\DEXTROSE\MAGNESIUM CHLORIDE\SODIUM CHLORIDE\SODIUM LACTATE
     Indication: CHRONIC KIDNEY DISEASE
     Route: 033

REACTIONS (6)
  - Blood pressure fluctuation [Recovered/Resolved]
  - Peritonsillar abscess [Recovered/Resolved]
  - Blood glucose fluctuation [Recovered/Resolved]
  - Weight fluctuation [Recovered/Resolved]
  - Clostridium difficile infection [Recovering/Resolving]
  - Iatrogenic infection [Recovering/Resolving]

NARRATIVE: CASE EVENT DATE: 20141231
